FAERS Safety Report 5116639-4 (Version None)
Quarter: 2006Q3

REPORT INFORMATION
  Report Type: 
  Country: None (occurrence: None)
  Receive Date: 20060928
  Receipt Date: 20060925
  Transmission Date: 20061208
  Serious: Yes (Other)
  Sender: FDA-Public Use
  Company Number: US-GLAXOSMITHKLINE-A0621326A

PATIENT
  Age: 75 Year
  Sex: Male

DRUGS (7)
  1. ADVAIR DISKUS 100/50 [Suspect]
     Indication: CHRONIC OBSTRUCTIVE PULMONARY DISEASE
     Dosage: 1PUFF TWICE PER DAY
     Route: 055
  2. ALBUTEROL [Concomitant]
  3. SPIRIVA [Concomitant]
  4. HEART MEDICATION [Concomitant]
  5. PLAVIX [Concomitant]
  6. LASIX [Concomitant]
  7. OTHER MEDICATIONS [Concomitant]

REACTIONS (4)
  - CATARACT [None]
  - CORRECTIVE LENS USER [None]
  - VISION BLURRED [None]
  - VISUAL ACUITY REDUCED [None]
